FAERS Safety Report 9288385 (Version 2)
Quarter: 2013Q3

REPORT INFORMATION
  Report Type: Spontaneous
  Country: JP (occurrence: None)
  Receive Date: 20130509
  Receipt Date: 20130711
  Transmission Date: 20140515
  Serious: Yes (Other)
  Sender: FDA-Public Use
  Company Number: ENT 2013-0083

PATIENT
  Sex: Female

DRUGS (4)
  1. COMTAN (ENTACAPONE) [Suspect]
     Route: 048
  2. FP [Concomitant]
  3. BI SIFROL [Concomitant]
  4. EVISTA [Concomitant]

REACTIONS (1)
  - Pancytopenia [None]
